FAERS Safety Report 5885172-4 (Version None)
Quarter: 2008Q3

REPORT INFORMATION
  Report Type: 
  Country: None (occurrence: None)
  Receive Date: 20080912
  Receipt Date: 20080828
  Transmission Date: 20090109
  Serious: Yes (Hospitalization, Other)
  Sender: FDA-Public Use
  Company Number: 2008S1012660

PATIENT
  Age: 61 Year
  Sex: Female

DRUGS (1)
  1. METOPROLOL TARTRATE [Suspect]
     Indication: HYPERTENSION
     Dosage: 25 MG;TWICE A DAY;ORAL
     Route: 048
     Dates: start: 20070101, end: 20080212

REACTIONS (1)
  - BLOOD PRESSURE INCREASED [None]
